FAERS Safety Report 6969320-0 (Version None)
Quarter: 2010Q3

REPORT INFORMATION
  Report Type: 
  Country: None (occurrence: None)
  Receive Date: 20100907
  Receipt Date: 20100825
  Transmission Date: 20110219
  Serious: Yes (Hospitalization, Other)
  Sender: FDA-Public Use
  Company Number: US-ELI_LILLY_AND_COMPANY-US201008008001

PATIENT
  Age: 67 Year
  Sex: Male

DRUGS (6)
  1. CIALIS [Suspect]
     Indication: ERECTILE DYSFUNCTION
     Dosage: 20 MG, AS NEEDED
  2. LISINOPRIL [Concomitant]
     Indication: BLOOD PRESSURE
  3. METFORMIN [Concomitant]
     Indication: DIABETES MELLITUS
  4. VALIUM [Concomitant]
     Indication: FEELING OF RELAXATION
  5. MELATONIN [Concomitant]
     Dosage: UNK, AS NEEDED
  6. AMBIEN CR [Concomitant]
     Dosage: UNK, AS NEEDED

REACTIONS (3)
  - ANAL FISTULA [None]
  - BLADDER CANCER [None]
  - SURGERY [None]
